FAERS Safety Report 4685262-8 (Version None)
Quarter: 2005Q2

REPORT INFORMATION
  Report Type: 
  Country: None (occurrence: None)
  Receive Date: 20050608
  Receipt Date: 20050531
  Transmission Date: 20051028
  Serious: Yes (Hospitalization)
  Sender: FDA-Public Use
  Company Number: PHEH2005US06056

PATIENT
  Age: 78 Year
  Sex: Female

DRUGS (3)
  1. STARLIX [Suspect]
     Indication: BLOOD GLUCOSE ABNORMAL
     Dosage: UNK, QD
     Route: 048
     Dates: start: 20030101
  2. NEURONTIN [Concomitant]
     Indication: HERPES ZOSTER
  3. ANTIHYPERTENSIVES [Concomitant]

REACTIONS (7)
  - ASTHENIA [None]
  - FALL [None]
  - FEELING ABNORMAL [None]
  - HALLUCINATION [None]
  - HEAD INJURY [None]
  - LOSS OF CONSCIOUSNESS [None]
  - WEIGHT DECREASED [None]
